FAERS Safety Report 8764373 (Version 2)
Quarter: 2012Q4

REPORT INFORMATION
  Report Type: 
  Country: GB (occurrence: GB)
  Receive Date: 20120831
  Receipt Date: 20120914
  Transmission Date: 20130627
  Serious: Yes (Disabling)
  Sender: FDA-Public Use
  Company Number: PHHY2012GB074840

PATIENT
  Age: 85 Year
  Sex: Male
  Weight: 84.8 kg

DRUGS (11)
  1. METRONIDAZOLE [Suspect]
     Dates: start: 20120725, end: 20120801
  2. SILVER SULFADIAZINE [Concomitant]
     Dates: start: 20120720, end: 20120730
  3. FUROSEMIDE [Concomitant]
     Dates: start: 20120510, end: 20120607
  4. FUROSEMIDE [Concomitant]
     Dates: start: 20120613, end: 20120711
  5. FUROSEMIDE [Concomitant]
     Dates: start: 20120720, end: 20120817
  6. RAMIPRIL [Concomitant]
     Dates: start: 20120510, end: 20120607
  7. RAMIPRIL [Concomitant]
     Dates: start: 20120613, end: 20120817
  8. SPIRONOLACTONE [Concomitant]
     Dates: start: 20120510, end: 20120607
  9. SPIRONOLACTONE [Concomitant]
     Dosage: UNK
     Dates: start: 20120613, end: 20120711
  10. SPIRONOLACTONE [Concomitant]
     Dates: start: 20120716, end: 20120817
  11. WARFARIN SODIUM [Concomitant]
     Dates: start: 20120423

REACTIONS (2)
  - Skin swelling [Recovered/Resolved]
  - Pruritus generalised [Unknown]
